FAERS Safety Report 5122296-3 (Version None)
Quarter: 2006Q4

REPORT INFORMATION
  Report Type: 
  Country: None (occurrence: None)
  Receive Date: 20061003
  Receipt Date: 20060918
  Transmission Date: 20070319
  Serious: Yes (Hospitalization)
  Sender: FDA-Public Use
  Company Number: FABR-11501

PATIENT
  Age: 50 Year
  Sex: Female

DRUGS (3)
  1. FABRAZYME [Suspect]
     Indication: FABRY'S DISEASE
     Dosage: 70 MG Q2WKS; IV
     Route: 042
     Dates: start: 20040106
  2. TOPAMAX [Concomitant]
  3. CYMBALTA [Concomitant]

REACTIONS (2)
  - ACNE [None]
  - SUICIDAL IDEATION [None]
